FAERS Safety Report 16383100 (Version 1)
Quarter: 2019Q2

REPORT INFORMATION
  Report Type: Spontaneous
  Country: US (occurrence: US)
  Receive Date: 20190603
  Receipt Date: 20190603
  Transmission Date: 20190711
  Serious: Yes (Other)
  Sender: FDA-Public Use
  Company Number: US-JUBILANT CADISTA PHARMACEUTICALS-2019JUB00205

PATIENT
  Age: 14 Year
  Sex: Male

DRUGS (2)
  1. FENTANYL. [Suspect]
     Active Substance: FENTANYL
     Dosage: 50 ?G/H
     Route: 065
  2. BUPROPION. [Suspect]
     Active Substance: BUPROPION
     Route: 048

REACTIONS (2)
  - Serotonin syndrome [Recovered/Resolved]
  - Status epilepticus [Recovered/Resolved]
